FAERS Safety Report 18607158 (Version 2)
Quarter: 2021Q1

REPORT INFORMATION
  Report Type: Report from Study
  Country: DE (occurrence: DE)
  Receive Date: 20201211
  Receipt Date: 20210107
  Transmission Date: 20210419
  Serious: Yes (Hospitalization)
  Sender: FDA-Public Use
  Company Number: DE-TAKEDA-2020TUS053845

PATIENT
  Age: 72 Year
  Sex: Male

DRUGS (20)
  1. TEDUGLUTIDE [Suspect]
     Active Substance: TEDUGLUTIDE
     Indication: SHORT-BOWEL SYNDROME
     Dosage: 2 MILLIGRAM (DAILY DOSE 0.02 MG/KG) TED DOSES PER WEEK 7
     Route: 065
     Dates: start: 20160114, end: 20160522
  2. TEDUGLUTIDE [Suspect]
     Active Substance: TEDUGLUTIDE
     Dosage: 2 MILLIGRAM, (DAILY DOSE 0.02 MG/KG) TED DOSES PER WEEK 7
     Route: 065
     Dates: start: 201609
  3. SODIUM [Concomitant]
     Active Substance: SODIUM
     Dosage: 840 MILLIGRAM, TID
     Route: 048
     Dates: start: 2020
  4. TEDUGLUTIDE [Suspect]
     Active Substance: TEDUGLUTIDE
     Dosage: 3.75 MILLIGRAM (DAILY DOSE 0.04 MG/KG) TED DOSES PER WEEK 7
     Route: 065
     Dates: start: 20160526, end: 201608
  5. TEDUGLUTIDE [Suspect]
     Active Substance: TEDUGLUTIDE
     Indication: SHORT-BOWEL SYNDROME
     Dosage: 2 MILLIGRAM (DAILY DOSE 0.02 MG/KG) TED DOSES PER WEEK 7
     Route: 065
     Dates: start: 20160114, end: 20160522
  6. ALLOPURINOL. [Concomitant]
     Active Substance: ALLOPURINOL
     Indication: GOUT
     Dosage: 100 MILLIGRAM, QD
     Route: 048
     Dates: start: 202005
  7. TEDUGLUTIDE [Suspect]
     Active Substance: TEDUGLUTIDE
     Indication: SHORT-BOWEL SYNDROME
     Dosage: 2 MILLIGRAM (DAILY DOSE 0.02 MG/KG) TED DOSES PER WEEK 7
     Route: 065
     Dates: start: 20160114, end: 20160522
  8. TEDUGLUTIDE [Suspect]
     Active Substance: TEDUGLUTIDE
     Dosage: 2 MILLIGRAM, (DAILY DOSE 0.02 MG/KG) TED DOSES PER WEEK 7
     Route: 065
     Dates: start: 201609
  9. TEDUGLUTIDE [Suspect]
     Active Substance: TEDUGLUTIDE
     Dosage: 2 MILLIGRAM, (DAILY DOSE 0.02 MG/KG) TED DOSES PER WEEK 7
     Route: 065
     Dates: start: 201609
  10. FERINJECT [Concomitant]
     Active Substance: FERRIC CARBOXYMALTOSE
     Dosage: 5 MILLIGRAM, PRN
     Route: 042
     Dates: start: 2019, end: 2020
  11. TEDUGLUTIDE [Suspect]
     Active Substance: TEDUGLUTIDE
     Dosage: 3.75 MILLIGRAM (DAILY DOSE 0.04 MG/KG) TED DOSES PER WEEK 7
     Route: 065
     Dates: start: 20160526, end: 201608
  12. TEDUGLUTIDE [Suspect]
     Active Substance: TEDUGLUTIDE
     Dosage: 5 MILLIGRAM, (DAILY DOSE 0.05 MG/KG) TED DOSES PER WEEK 7
     Route: 065
     Dates: start: 201608, end: 201609
  13. TEDUGLUTIDE [Suspect]
     Active Substance: TEDUGLUTIDE
     Dosage: 5 MILLIGRAM, (DAILY DOSE 0.05 MG/KG) TED DOSES PER WEEK 7
     Route: 065
     Dates: start: 201608, end: 201609
  14. TEDUGLUTIDE [Suspect]
     Active Substance: TEDUGLUTIDE
     Dosage: 2 MILLIGRAM, (DAILY DOSE 0.02 MG/KG) TED DOSES PER WEEK 7
     Route: 065
     Dates: start: 201609
  15. TEDUGLUTIDE [Suspect]
     Active Substance: TEDUGLUTIDE
     Dosage: 3.75 MILLIGRAM (DAILY DOSE 0.04 MG/KG) TED DOSES PER WEEK 7
     Route: 065
     Dates: start: 20160526, end: 201608
  16. TEDUGLUTIDE [Suspect]
     Active Substance: TEDUGLUTIDE
     Dosage: 5 MILLIGRAM, (DAILY DOSE 0.05 MG/KG) TED DOSES PER WEEK 7
     Route: 065
     Dates: start: 201608, end: 201609
  17. TEDUGLUTIDE [Suspect]
     Active Substance: TEDUGLUTIDE
     Dosage: 5 MILLIGRAM, (DAILY DOSE 0.05 MG/KG) TED DOSES PER WEEK 7
     Route: 065
     Dates: start: 201608, end: 201609
  18. PREDNISONE. [Concomitant]
     Active Substance: PREDNISONE
     Indication: GOUT
     Route: 048
  19. TEDUGLUTIDE [Suspect]
     Active Substance: TEDUGLUTIDE
     Indication: SHORT-BOWEL SYNDROME
     Dosage: 2 MILLIGRAM (DAILY DOSE 0.02 MG/KG) TED DOSES PER WEEK 7
     Route: 065
     Dates: start: 20160114, end: 20160522
  20. TEDUGLUTIDE [Suspect]
     Active Substance: TEDUGLUTIDE
     Dosage: 3.75 MILLIGRAM (DAILY DOSE 0.04 MG/KG) TED DOSES PER WEEK 7
     Route: 065
     Dates: start: 20160526, end: 201608

REACTIONS (1)
  - Nephrolithiasis [Recovered/Resolved]

NARRATIVE: CASE EVENT DATE: 20200803
